FAERS Safety Report 5376650-5 (Version None)
Quarter: 2007Q2

REPORT INFORMATION
  Report Type: 
  Country: None (occurrence: None)
  Receive Date: 20070629
  Receipt Date: 20070622
  Transmission Date: 20071010
  Serious: Yes (Death, Other)
  Sender: FDA-Public Use
  Company Number: MEDI-0005844

PATIENT
  Age: 5 Month
  Sex: Male
  Weight: 0.74 kg

DRUGS (7)
  1. SYNAGIS [Suspect]
     Indication: ANTIVIRAL PROPHYLAXIS
     Dates: start: 20051018, end: 20051018
  2. SODIUM FEREDETATE (SODIUM FEREDETATE) [Concomitant]
  3. IPRATROPIUM BROMIDE [Concomitant]
  4. DALIVIT (ERGOCALCIFEROL, ASCORBIC ACID, PYRIDOXINE HYDROCHLORIDE, RETI [Concomitant]
  5. DEXAMETHASONE TAB [Concomitant]
  6. SPIRONOLACTONE [Concomitant]
  7. CHLOROTHIAZIDE [Concomitant]

REACTIONS (2)
  - LUNG DISORDER [None]
  - RESPIRATORY SYNCYTIAL VIRUS BRONCHIOLITIS [None]
